FAERS Safety Report 5944650-X (Version None)
Quarter: 2008Q4

REPORT INFORMATION
  Report Type: 
  Country: None (occurrence: None)
  Receive Date: 20081107
  Receipt Date: 20081027
  Transmission Date: 20090506
  Serious: Yes (Hospitalization)
  Sender: FDA-Public Use
  Company Number: US-BAXTER-2008BH011520

PATIENT
  Age: 36 Year
  Sex: Female

DRUGS (2)
  1. DIANEAL [Suspect]
     Indication: RENAL FAILURE CHRONIC
     Dosage: DOSE UNIT:UNKNOWN
     Route: 033
     Dates: start: 20080201
  2. ANTIBIOTICS [Concomitant]
     Indication: INFECTION
     Dates: start: 20080101

REACTIONS (1)
  - FUNGAL PERITONITIS [None]
